FAERS Safety Report 10189892 (Version 1)
Quarter: 2014Q2

REPORT INFORMATION
  Report Type: Spontaneous
  Country: US (occurrence: US)
  Receive Date: 20140522
  Receipt Date: 20140522
  Transmission Date: 20141212
  Serious: Yes (Other)
  Sender: FDA-Public Use
  Company Number: US-SA-2014SA006727

PATIENT
  Age: 78 Year
  Sex: Female

DRUGS (2)
  1. LANTUS SOLOSTAR [Suspect]
     Indication: TYPE 2 DIABETES MELLITUS
     Dosage: DOCTOR INCREASED HER DOSE FROM 30UNITS TO 40UNITS. DOSE:40 UNIT(S)
     Route: 058
     Dates: start: 2005
  2. SOLOSTAR [Concomitant]
     Dates: start: 2005

REACTIONS (4)
  - Cataract [Unknown]
  - Visual impairment [Unknown]
  - Blood glucose increased [Unknown]
  - Drug dose omission [Unknown]
